FAERS Safety Report 13309607 (Version 1)
Quarter: 2017Q1

REPORT INFORMATION
  Report Type: Spontaneous
  Country: US (occurrence: US)
  Receive Date: 20170308
  Receipt Date: 20170308
  Transmission Date: 20170428
  Serious: No
  Sender: FDA-Public Use
  Company Number: None

PATIENT
  Age: 73 Year
  Sex: Female

DRUGS (1)
  1. CYCLOPHOSPHAMIDE 50MG WEST-WARD [Suspect]
     Active Substance: CYCLOPHOSPHAMIDE
     Indication: RHEUMATOID ARTHRITIS
     Route: 048
     Dates: start: 20170207

REACTIONS (2)
  - Vision blurred [None]
  - Endocrine ophthalmopathy [None]

NARRATIVE: CASE EVENT DATE: 20170207
